FAERS Safety Report 22193686 (Version 7)
Quarter: 2023Q2

REPORT INFORMATION
  Report Type: Report from Study
  Country: TR (occurrence: TR)
  Receive Date: 20230410
  Receipt Date: 20230623
  Transmission Date: 20230722
  Serious: Yes (Death, Hospitalization)
  Sender: FDA-Public Use
  Company Number: TR-JAZZ PHARMACEUTICALS-2023-TR-007388

PATIENT
  Age: 57 Year
  Sex: Male

DRUGS (58)
  1. LURBINECTEDIN [Suspect]
     Active Substance: LURBINECTEDIN
     Indication: Small cell lung cancer extensive stage
     Dosage: 5.9 MILLIGRAM, EVERY 3 WEEKS
     Route: 042
     Dates: start: 20230223, end: 20230314
  2. LURBINECTEDIN [Suspect]
     Active Substance: LURBINECTEDIN
     Dosage: 4.6 MILLIGRAM
     Route: 042
     Dates: start: 20230418
  3. ATEZOLIZUMAB [Suspect]
     Active Substance: ATEZOLIZUMAB
     Indication: Small cell lung cancer extensive stage
     Dosage: 1200 MILLIGRAM, EVERY 3 WEEKS
     Route: 042
     Dates: start: 20221117, end: 20230314
  4. CARBOPLATIN [Suspect]
     Active Substance: CARBOPLATIN
     Indication: Small cell lung cancer extensive stage
     Dosage: 666.4 MILLIGRAM
     Route: 042
     Dates: start: 20221117
  5. ETOPOSIDE [Suspect]
     Active Substance: ETOPOSIDE
     Indication: Small cell lung cancer extensive stage
     Dosage: 183 MILLIGRAM (186 MILLIGRAM OTHER)
     Route: 042
     Dates: start: 20221117, end: 20230203
  6. NORVASC [Concomitant]
     Active Substance: AMLODIPINE BESYLATE
     Indication: Hypertension
     Dosage: UNK
     Dates: start: 20221116
  7. CALCIMAX D3 [CALCIUM CITRATE;COLECALCIFEROL] [Concomitant]
     Dosage: UNK
     Dates: start: 20221214
  8. METHYLPREDNISOLONE [Concomitant]
     Active Substance: METHYLPREDNISOLONE
     Dosage: 32 MILLIGRAM, 2 IN 1 D
     Route: 048
     Dates: start: 20221228
  9. LEVEMIR [Concomitant]
     Active Substance: INSULIN DETEMIR
     Indication: Hyperglycaemia
     Dosage: UNK
     Dates: start: 20230116, end: 20230221
  10. NOVORAPID [Concomitant]
     Active Substance: INSULIN ASPART
     Indication: Hyperglycaemia
     Dosage: UNK
     Dates: start: 20230116, end: 20230221
  11. HUMAN RED BLOOD CELL [Concomitant]
     Active Substance: HUMAN RED BLOOD CELL
     Indication: Anaemia
     Dosage: UNK
     Dates: start: 20230221, end: 20230221
  12. HUMAN RED BLOOD CELL [Concomitant]
     Active Substance: HUMAN RED BLOOD CELL
     Dosage: UNK
     Dates: start: 20230331, end: 20230331
  13. HUMAN RED BLOOD CELL [Concomitant]
     Active Substance: HUMAN RED BLOOD CELL
     Dosage: UNK
     Dates: start: 20230428, end: 20230428
  14. HUMAN RED BLOOD CELL [Concomitant]
     Active Substance: HUMAN RED BLOOD CELL
     Dosage: UNK
     Dates: start: 20230430, end: 20230430
  15. HUMAN RED BLOOD CELL [Concomitant]
     Active Substance: HUMAN RED BLOOD CELL
     Dosage: UNK
     Dates: start: 20230503, end: 20230503
  16. HUMAN RED BLOOD CELL [Concomitant]
     Active Substance: HUMAN RED BLOOD CELL
     Dosage: UNK
     Dates: start: 20230505, end: 20230505
  17. HUMAN RED BLOOD CELL [Concomitant]
     Active Substance: HUMAN RED BLOOD CELL
     Dosage: UNK
     Dates: start: 20230509, end: 20230510
  18. HUMAN RED BLOOD CELL [Concomitant]
     Active Substance: HUMAN RED BLOOD CELL
     Dosage: UNK
     Dates: start: 20230513, end: 20230513
  19. HUMAN RED BLOOD CELL [Concomitant]
     Active Substance: HUMAN RED BLOOD CELL
     Dosage: UNK
     Dates: start: 20230517, end: 20230517
  20. DEXAMETHASONE [Concomitant]
     Active Substance: DEXAMETHASONE
     Dosage: 8 MILLIGRAM
     Route: 042
     Dates: start: 20230223, end: 20230223
  21. DEXAMETHASONE [Concomitant]
     Active Substance: DEXAMETHASONE
     Dosage: MG,1 IN 1 AS REQUIRED
     Route: 042
     Dates: start: 20230314, end: 20230314
  22. DEXAMETHASONE [Concomitant]
     Active Substance: DEXAMETHASONE
     Dosage: 8 MILLIGRAM
     Route: 042
     Dates: start: 20230418, end: 20230418
  23. ONDANSETRON HYDROCHLORIDE [Concomitant]
     Active Substance: ONDANSETRON HYDROCHLORIDE
     Dosage: UNK
     Dates: start: 20230223, end: 20230223
  24. ONDANSETRON HYDROCHLORIDE [Concomitant]
     Active Substance: ONDANSETRON HYDROCHLORIDE
     Dosage: UNK
     Dates: start: 20230314, end: 20230314
  25. ONDANSETRON HYDROCHLORIDE [Concomitant]
     Active Substance: ONDANSETRON HYDROCHLORIDE
     Dosage: UNK
     Dates: start: 20230418, end: 20230418
  26. PHENIRAMINE [Concomitant]
     Active Substance: PHENIRAMINE
     Dosage: UNK
     Dates: start: 20230223, end: 20230223
  27. PHENIRAMINE [Concomitant]
     Active Substance: PHENIRAMINE
     Dosage: UNK
     Dates: start: 20230314, end: 20230314
  28. PHENIRAMINE [Concomitant]
     Active Substance: PHENIRAMINE
     Dosage: UNK
     Dates: start: 20230418, end: 20230418
  29. FRAVEN [Concomitant]
     Dosage: 48 INTERNATIONAL UNIT
     Route: 058
     Dates: start: 20230225, end: 20230301
  30. FRAVEN [Concomitant]
     Dosage: 48 INTERNATIONAL UNIT
     Route: 058
     Dates: start: 20230316, end: 20230320
  31. FRAVEN [Concomitant]
     Dosage: 48 GTT,1 IN 1 AS REQUIRED
     Route: 058
     Dates: start: 20230324, end: 20230403
  32. GRANEXA [Concomitant]
     Dosage: UNK
     Dates: start: 20221121
  33. PANTOPRAZOLE [Concomitant]
     Active Substance: PANTOPRAZOLE
     Dosage: UNK
     Dates: start: 20221221
  34. SODIUM CHLORIDE [Concomitant]
     Active Substance: SODIUM CHLORIDE
     Dosage: UNK
     Dates: start: 20230323, end: 20230326
  35. SODIUM CHLORIDE [Concomitant]
     Active Substance: SODIUM CHLORIDE
     Dosage: UNK
     Dates: start: 20230329, end: 20230402
  36. SODIUM CHLORIDE [Concomitant]
     Active Substance: SODIUM CHLORIDE
     Dosage: UNK
     Dates: start: 20230426, end: 20230426
  37. SODIUM CHLORIDE [Concomitant]
     Active Substance: SODIUM CHLORIDE
     Dosage: UNK
     Dates: start: 20230428, end: 20230501
  38. SODIUM CHLORIDE [Concomitant]
     Active Substance: SODIUM CHLORIDE
     Dosage: UNK
     Dates: start: 20230505, end: 20230509
  39. SODIUM CHLORIDE [Concomitant]
     Active Substance: SODIUM CHLORIDE
     Dosage: UNK
     Dates: start: 20230511, end: 20230517
  40. DEXTROSE [Concomitant]
     Active Substance: DEXTROSE\DEXTROSE MONOHYDRATE
     Dosage: UNK
     Dates: start: 20230514, end: 20230516
  41. POTASSIUM CHLORIDE [Concomitant]
     Active Substance: POTASSIUM CHLORIDE
     Dosage: UNK
     Dates: start: 20230326, end: 20230326
  42. POTASSIUM CHLORIDE [Concomitant]
     Active Substance: POTASSIUM CHLORIDE
     Dosage: UNK
     Dates: start: 20230429, end: 20230429
  43. POTASSIUM CHLORIDE [Concomitant]
     Active Substance: POTASSIUM CHLORIDE
     Dosage: UNK
     Dates: start: 20230503, end: 20230503
  44. POTASSIUM CHLORIDE [Concomitant]
     Active Substance: POTASSIUM CHLORIDE
     Dosage: UNK
     Dates: start: 20230506, end: 20230507
  45. POTASSIUM CHLORIDE [Concomitant]
     Active Substance: POTASSIUM CHLORIDE
     Dosage: UNK
     Dates: start: 20230515, end: 20230515
  46. PANTOPRAZOLE SODIUM [Concomitant]
     Active Substance: PANTOPRAZOLE SODIUM
     Dosage: UNK
     Dates: start: 20230322, end: 20230403
  47. PANTOPRAZOLE SODIUM [Concomitant]
     Active Substance: PANTOPRAZOLE SODIUM
     Dosage: UNK
     Dates: start: 20230426, end: 20230511
  48. OMNIPOL [IOHEXOL] [Concomitant]
     Dosage: UNK
     Dates: start: 20230322, end: 20230322
  49. OMNIPOL [IOHEXOL] [Concomitant]
     Dosage: UNK
     Dates: start: 20230516, end: 20230516
  50. KARDOZIN [Concomitant]
     Dosage: UNK
     Dates: start: 20230331, end: 20230331
  51. FARDOBEN [Concomitant]
     Dosage: UNK
     Dates: start: 20230328, end: 20230328
  52. PARACEROL [Concomitant]
     Dosage: UNK
     Dates: start: 20230328, end: 20230328
  53. MEGACE [Concomitant]
     Active Substance: MEGESTROL ACETATE
     Dosage: UNK
     Dates: start: 20230322
  54. AUGMENTIN [Concomitant]
     Active Substance: AMOXICILLIN\CLAVULANATE POTASSIUM
     Dosage: UNK
     Dates: start: 20230403, end: 20230410
  55. CIPRO [Concomitant]
     Active Substance: CIPROFLOXACIN HYDROCHLORIDE
     Dosage: UNK
     Dates: start: 20230403, end: 20230410
  56. INFENIL [Concomitant]
     Dosage: UNK
     Dates: start: 20230426, end: 20230426
  57. INFENIL [Concomitant]
     Dosage: UNK
     Dates: start: 20230503, end: 20230503
  58. INFENIL [Concomitant]
     Dosage: UNK
     Dates: start: 20230515, end: 20230515

REACTIONS (9)
  - Febrile neutropenia [Fatal]
  - Platelet count decreased [Not Recovered/Not Resolved]
  - Neutrophil count decreased [Recovered/Resolved]
  - White blood cell count decreased [Not Recovered/Not Resolved]
  - Lymphocyte count decreased [Not Recovered/Not Resolved]
  - Pulmonary embolism [Not Recovered/Not Resolved]
  - Blood bilirubin increased [Not Recovered/Not Resolved]
  - Alkalosis [Recovered/Resolved]
  - Acidosis [Not Recovered/Not Resolved]

NARRATIVE: CASE EVENT DATE: 20230306
